FAERS Safety Report 12296677 (Version 1)
Quarter: 2016Q2

REPORT INFORMATION
  Report Type: Report from Study
  Country: RU (occurrence: RU)
  Receive Date: 20160422
  Receipt Date: 20160422
  Transmission Date: 20160815
  Serious: Yes (Life-Threatening, Other)
  Sender: FDA-Public Use
  Company Number: RU-BAYER-2016-074640

PATIENT
  Age: 54 Year
  Sex: Female

DRUGS (1)
  1. JARINA PLUS [Suspect]
     Active Substance: DROSPIRENONE\ETHINYL ESTRADIOL\LEVOMEFOLATE CALCIUM
     Indication: CHEMICAL CONTRACEPTION
     Dosage: UNK
     Route: 048
     Dates: start: 201304, end: 201404

REACTIONS (4)
  - Diabetic neuropathy [None]
  - Hemiparesis [None]
  - Ischaemic stroke [None]
  - Aphasia [None]

NARRATIVE: CASE EVENT DATE: 201404
